FAERS Safety Report 23135183 (Version 2)
Quarter: 2023Q4

REPORT INFORMATION
  Report Type: Spontaneous
  Country: SE (occurrence: SE)
  Receive Date: 20231101
  Receipt Date: 20231103
  Transmission Date: 20240110
  Serious: Yes (Other)
  Sender: FDA-Public Use
  Company Number: SE-BIOVITRUM-2023-SE-017409

PATIENT
  Sex: Male

DRUGS (6)
  1. EMAPALUMAB [Suspect]
     Active Substance: EMAPALUMAB
     Indication: Product used for unknown indication
  2. EMAPALUMAB [Suspect]
     Active Substance: EMAPALUMAB
     Dates: start: 20231027
  3. ETOPOSIDE [Suspect]
     Active Substance: ETOPOSIDE
     Indication: Product used for unknown indication
  4. AMPHOTERICIN B [Concomitant]
     Active Substance: AMPHOTERICIN B
     Indication: Product used for unknown indication
  5. ANAKINRA [Concomitant]
     Active Substance: ANAKINRA
     Indication: Product used for unknown indication
  6. TACROLIMUS [Concomitant]
     Active Substance: TACROLIMUS
     Indication: Product used for unknown indication

REACTIONS (7)
  - Renal injury [Recovering/Resolving]
  - Product dose omission issue [Unknown]
  - Condition aggravated [Recovering/Resolving]
  - Serum ferritin abnormal [Recovering/Resolving]
  - Pyrexia [Recovering/Resolving]
  - Platelet count decreased [Recovering/Resolving]
  - Blood lactate dehydrogenase abnormal [Recovering/Resolving]
